FAERS Safety Report 6431266-4 (Version None)
Quarter: 2009Q4

REPORT INFORMATION
  Report Type: 
  Country: None (occurrence: None)
  Receive Date: 20091105
  Receipt Date: 20091105
  Transmission Date: 20100525
  Serious: Yes (Other)
  Sender: FDA-Public Use
  Company Number: None

PATIENT
  Age: 38 Year
  Sex: Female
  Weight: 77.5651 kg

DRUGS (1)
  1. ALDARA [Suspect]
     Indication: CHEILITIS
     Dosage: THIN LAYER ON LIP BEFORE HAD  2XM-F -.25G TOTAL- TOP
     Route: 061
     Dates: start: 20091019, end: 20091103

REACTIONS (8)
  - BURNING SENSATION [None]
  - DIZZINESS [None]
  - GINGIVAL PAIN [None]
  - LIP BLISTER [None]
  - LIP SWELLING [None]
  - PAIN [None]
  - PRURITUS GENERALISED [None]
  - TOOTHACHE [None]
